FAERS Safety Report 7414882-2 (Version None)
Quarter: 2011Q2

REPORT INFORMATION
  Report Type: 
  Country: None (occurrence: None)
  Receive Date: 20110414
  Receipt Date: 20110215
  Transmission Date: 20111010
  Serious: Yes (Other)
  Sender: FDA-Public Use
  Company Number: US-SANOFI-AVENTIS-2011SA022460

PATIENT
  Age: 88 Year
  Sex: Female

DRUGS (4)
  1. LANTUS [Suspect]
     Indication: TYPE 2 DIABETES MELLITUS
     Dosage: DOSE:28 UNIT(S)
     Route: 058
     Dates: start: 20060101, end: 20100101
  2. OPTICLICK [Suspect]
     Indication: TYPE 2 DIABETES MELLITUS
     Dates: start: 20110101
  3. LANTUS [Suspect]
     Dosage: DOSE:28 UNIT(S)
     Route: 058
     Dates: start: 20110101
  4. OPTICLICK [Suspect]
     Dates: start: 20060101

REACTIONS (1)
  - DEMENTIA [None]
